FAERS Safety Report 4365736-X (Version None)
Quarter: 2004Q2

REPORT INFORMATION
  Report Type: 
  Country: None (occurrence: None)
  Receive Date: 20040526
  Receipt Date: 20040526
  Transmission Date: 20050107
  Serious: Yes (Life-Threatening)
  Sender: FDA-Public Use
  Company Number: None

PATIENT
  Age: 68 Year
  Sex: Male

DRUGS (1)
  1. PROTAMINE 50 MG VIAL [Suspect]
     Dosage: DRIP
     Dates: start: 20040317, end: 20040317

REACTIONS (3)
  - HYPOTENSION [None]
  - PULMONARY HYPERTENSION [None]
  - TACHYCARDIA [None]
